FAERS Safety Report 12912962 (Version 1)
Quarter: 2016Q4

REPORT INFORMATION
  Report Type: Other
  Country: AU (occurrence: AU)
  Receive Date: 20161104
  Receipt Date: 20161104
  Transmission Date: 20170207
  Serious: Yes (Death)
  Sender: FDA-Public Use
  Company Number: AU-LHC-2016154

PATIENT
  Age: 72 Year
  Sex: Male

DRUGS (1)
  1. BOC GASES REFRIDGERATED LIQUID OXYGEN MEDICAL GRADE(S) GAS MEDICINAL [Suspect]
     Active Substance: OXYGEN
     Indication: LUNG DISORDER
     Route: 066

REACTIONS (2)
  - Incorrect route of drug administration [Fatal]
  - Barotrauma [Fatal]
